FAERS Safety Report 15794832 (Version 1)
Quarter: 2018Q4

REPORT INFORMATION
  Report Type: Spontaneous
  Country: US (occurrence: US)
  Receive Date: 20181213
  Receipt Date: 20181213
  Transmission Date: 20190205
  Serious: No
  Sender: FDA-Public Use
  Company Number: None

PATIENT
  Age: 62 Year
  Sex: Female
  Weight: 106.59 kg

DRUGS (4)
  1. HUMIRA [Suspect]
     Active Substance: ADALIMUMAB
     Indication: PSORIATIC ARTHROPATHY
     Dosage: ?          OTHER FREQUENCY:EVERY 2 WEEKS;?
     Route: 058
     Dates: start: 201706
  2. OTREXUP [Suspect]
     Active Substance: METHOTREXATE
     Indication: PSORIATIC ARTHROPATHY
     Dosage: ?          OTHER FREQUENCY:ONCE WEEKLY; SAME DAY OF WEEK?
     Route: 058
     Dates: start: 201704
  3. HUMIRA [Suspect]
     Active Substance: ADALIMUMAB
     Indication: PSORIASIS
     Dosage: ?          OTHER FREQUENCY:EVERY 2 WEEKS;?
     Route: 058
     Dates: start: 201706
  4. OTREXUP [Suspect]
     Active Substance: METHOTREXATE
     Indication: PSORIASIS
     Dosage: ?          OTHER FREQUENCY:ONCE WEEKLY; SAME DAY OF WEEK?
     Route: 058
     Dates: start: 201704

REACTIONS (1)
  - Contraindicated product administered [None]
